FAERS Safety Report 14262391 (Version 1)
Quarter: 2017Q4

REPORT INFORMATION
  Report Type: Spontaneous
  Country: US (occurrence: US)
  Receive Date: 20171208
  Receipt Date: 20171208
  Transmission Date: 20180321
  Serious: No
  Sender: FDA-Public Use
  Company Number: US-KYOWAKIRIN-2017BKK001395

PATIENT

DRUGS (2)
  1. SANCUSO [Suspect]
     Active Substance: GRANISETRON
     Indication: PRODUCT USED FOR UNKNOWN INDICATION
     Dosage: 1 DF
     Route: 065
     Dates: start: 2015
  2. SANCUSO [Suspect]
     Active Substance: GRANISETRON
     Dosage: 1 UNK, UNK
     Route: 062
     Dates: start: 20170510

REACTIONS (3)
  - Application site erythema [Unknown]
  - Product adhesion issue [Unknown]
  - Product quality issue [None]

NARRATIVE: CASE EVENT DATE: 2015
